FAERS Safety Report 7971302-7 (Version None)
Quarter: 2011Q4

REPORT INFORMATION
  Report Type: 
  Country: None (occurrence: None)
  Receive Date: 20111212
  Receipt Date: 20111014
  Transmission Date: 20120403
  Serious: No
  Sender: FDA-Public Use
  Company Number: US-BRISTOL-MYERS SQUIBB COMPANY-16164162

PATIENT

DRUGS (2)
  1. SODIUM CHLORIDE [Concomitant]
  2. IXEMPRA KIT [Suspect]
     Dosage: 45MG  LOT:OK032A  EXPIRY DATE: NOV 2012    15MG  LOT:OIO25B EXPIRY DATE: SEP 2012

REACTIONS (1)
  - CIRCUMSTANCE OR INFORMATION CAPABLE OF LEADING TO MEDICATION ERROR [None]
